FAERS Safety Report 6864666-9 (Version None)
Quarter: 2010Q3

REPORT INFORMATION
  Report Type: 
  Country: None (occurrence: None)
  Receive Date: 20100721
  Receipt Date: 20080402
  Transmission Date: 20110219
  Serious: No
  Sender: FDA-Public Use
  Company Number: US-PFIZER INC-2008028557

PATIENT
  Sex: Female
  Weight: 79.5 kg

DRUGS (4)
  1. CHANTIX [Suspect]
     Indication: SMOKING CESSATION THERAPY
     Dates: start: 20080311
  2. TEMAZEPAM [Concomitant]
     Indication: INSOMNIA
  3. LISINOPRIL [Concomitant]
     Indication: HYPERTENSION
  4. FOSAMAX [Concomitant]

REACTIONS (2)
  - RASH [None]
  - URTICARIA [None]
